FAERS Safety Report 15351755 (Version 1)
Quarter: 2018Q3

REPORT INFORMATION
  Report Type: Spontaneous
  Country: US (occurrence: US)
  Receive Date: 20180905
  Receipt Date: 20180905
  Transmission Date: 20181010
  Serious: No
  Sender: FDA-Public Use
  Company Number: US-SA-2018SA244592

PATIENT
  Age: 58 Year
  Sex: Female

DRUGS (7)
  1. CARBAMAZEPINE. [Concomitant]
     Active Substance: CARBAMAZEPINE
  2. AMLODIPINE BESYLATE. [Concomitant]
     Active Substance: AMLODIPINE BESYLATE
  3. AMOXICILLIN. [Concomitant]
     Active Substance: AMOXICILLIN
  4. AUBAGIO [Suspect]
     Active Substance: TERIFLUNOMIDE
     Indication: PRODUCT USED FOR UNKNOWN INDICATION
     Dosage: 14 MG, QD
     Route: 048
     Dates: start: 20180713
  5. RANITIDINE HCL [Concomitant]
     Active Substance: RANITIDINE HYDROCHLORIDE
  6. VITAMIN D [Concomitant]
     Active Substance: CHOLECALCIFEROL
  7. NEURONTIN [Concomitant]
     Active Substance: GABAPENTIN
     Dosage: 800 MG

REACTIONS (2)
  - Alopecia [Not Recovered/Not Resolved]
  - Urinary tract infection [Not Recovered/Not Resolved]
